FAERS Safety Report 4407858-0 (Version None)
Quarter: 2004Q3

REPORT INFORMATION
  Report Type: 
  Country: None (occurrence: None)
  Receive Date: 20040726
  Receipt Date: 20040623
  Transmission Date: 20050211
  Serious: Yes (Hospitalization, Other)
  Sender: FDA-Public Use
  Company Number: PHFR2004GB02599

PATIENT
  Age: 33 Year
  Sex: Male

DRUGS (8)
  1. CLOZARIL [Suspect]
     Indication: SCHIZOPHRENIA
     Dosage: 150MG/DAY
     Route: 048
     Dates: start: 20040522, end: 20040622
  2. LITHIUM [Concomitant]
     Dosage: 1200MG/DAY
     Route: 048
  3. DIAZEPAM [Concomitant]
  4. CHLORAL HYDRATE [Concomitant]
     Indication: INSOMNIA
     Dosage: 10MG/DAY
     Route: 048
  5. LACTULOSE [Concomitant]
     Indication: CONSTIPATION
     Dosage: 10MD/DAY
     Route: 048
  6. SENNA [Concomitant]
     Indication: CONSTIPATION
  7. HALOPERIDOL [Concomitant]
     Indication: SCHIZOPHRENIA
     Dates: start: 20040623
  8. PREDNISOLONE [Concomitant]
     Dosage: 20MG/DAY

REACTIONS (14)
  - ANTINUCLEAR ANTIBODY POSITIVE [None]
  - ARTHRALGIA [None]
  - BLOOD PRESSURE INCREASED [None]
  - CHEST PAIN [None]
  - DYSPNOEA [None]
  - EOSINOPHIL COUNT INCREASED [None]
  - HEART RATE INCREASED [None]
  - IMMUNOGLOBULINS INCREASED [None]
  - MIXED CONNECTIVE TISSUE DISEASE [None]
  - PERICARDITIS [None]
  - PLATELET COUNT INCREASED [None]
  - PLEURAL EFFUSION [None]
  - PYREXIA [None]
  - WHITE BLOOD CELL COUNT INCREASED [None]
